FAERS Safety Report 17300896 (Version 1)
Quarter: 2020Q1

REPORT INFORMATION
  Report Type: Spontaneous
  Country: US (occurrence: US)
  Receive Date: 20200122
  Receipt Date: 20200122
  Transmission Date: 20200409
  Serious: No
  Sender: FDA-Public Use
  Company Number: US-PFIZER INC-2019512909

PATIENT
  Age: 51 Year
  Sex: Male

DRUGS (1)
  1. ZYVOX [Suspect]
     Active Substance: LINEZOLID
     Dosage: 600 MG, 2X/DAY (1 TABLET TWICE A DAY)

REACTIONS (3)
  - Malaise [Unknown]
  - Product prescribing issue [Unknown]
  - Off label use [Unknown]
